FAERS Safety Report 9718324 (Version 1)
Quarter: 2013Q4

REPORT INFORMATION
  Report Type: Spontaneous
  Country: US (occurrence: US)
  Receive Date: 20131127
  Receipt Date: 20131127
  Transmission Date: 20140711
  Serious: No
  Sender: FDA-Public Use
  Company Number: US-B.I. PHARMACEUTICALS,INC./RIDGEFIELD-2013-BI-37790BP

PATIENT
  Age: 53 Year
  Sex: Male
  Weight: 109 kg

DRUGS (1)
  1. COMBIVENT [Suspect]
     Indication: CHRONIC OBSTRUCTIVE PULMONARY DISEASE
     Dosage: DOSE PER APPLICATION: 20 MCG / 100 MCG; DAILY DOSE: 160 MCG/800 MCG
     Route: 055
     Dates: start: 201307

REACTIONS (3)
  - Drug effect decreased [Not Recovered/Not Resolved]
  - Prescribed overdose [Not Recovered/Not Resolved]
  - Drug ineffective [Not Recovered/Not Resolved]
